FAERS Safety Report 19933565 (Version 1)
Quarter: 2021Q4

REPORT INFORMATION
  Report Type: Spontaneous
  Country: US (occurrence: US)
  Receive Date: 20211006
  Receipt Date: 20211006
  Transmission Date: 20220303
  Serious: No
  Sender: FDA-Public Use
  Company Number: None

PATIENT
  Age: 46 Year
  Sex: Female

DRUGS (2)
  1. CLONAZEPAM [Suspect]
     Active Substance: CLONAZEPAM
     Indication: Generalised anxiety disorder
     Route: 048
     Dates: start: 20131101, end: 20210422
  2. CLONAZEPAM [Suspect]
     Active Substance: CLONAZEPAM
     Indication: Sydenham^s chorea

REACTIONS (4)
  - Therapeutic product effect decreased [None]
  - Product substitution issue [None]
  - Dysgeusia [None]
  - Nausea [None]
